FAERS Safety Report 4944053-0 (Version None)
Quarter: 2006Q1

REPORT INFORMATION
  Report Type: 
  Country: None (occurrence: None)
  Receive Date: 20060315
  Receipt Date: 20050401
  Transmission Date: 20060701
  Serious: Yes (Death)
  Sender: FDA-Public Use
  Company Number: CN-JNJFOC-20060303306

PATIENT

DRUGS (1)
  1. ITRACONAZOLE [Suspect]

REACTIONS (1)
  - SYSTEMIC MYCOSIS [None]
